FAERS Safety Report 6739933-X (Version None)
Quarter: 2010Q2

REPORT INFORMATION
  Report Type: 
  Country: None (occurrence: None)
  Receive Date: 20100525
  Receipt Date: 20100514
  Transmission Date: 20101027
  Serious: Yes (Other)
  Sender: FDA-Public Use
  Company Number: JP-PFIZER INC-2010062599

PATIENT

DRUGS (2)
  1. UNASYN [Suspect]
     Route: 042
  2. HEPARIN SODIUM [Concomitant]

REACTIONS (1)
  - ANAEMIA POSTOPERATIVE [None]
